FAERS Safety Report 25497652 (Version 1)
Quarter: 2025Q3

REPORT INFORMATION
  Report Type: Spontaneous
  Country: EU (occurrence: EU)
  Receive Date: 20250701
  Receipt Date: 20250701
  Transmission Date: 20251020
  Serious: Yes (Life-Threatening, Hospitalization)
  Sender: ACCORD
  Company Number: None

PATIENT
  Age: 66 Year
  Sex: Male

DRUGS (6)
  1. LEVETIRACETAM [Suspect]
     Active Substance: LEVETIRACETAM
     Indication: Medication error
     Dates: start: 20250130, end: 20250130
  2. RIVOTRIL [Suspect]
     Active Substance: CLONAZEPAM
     Indication: Medication error
     Dates: start: 20250130, end: 20250130
  3. PHENOBARBITAL [Suspect]
     Active Substance: PHENOBARBITAL
     Indication: Medication error
     Dates: start: 20250130, end: 20250130
  4. LAMOTRIGINE [Suspect]
     Active Substance: LAMOTRIGINE
     Indication: Medication error
     Dates: start: 20250130, end: 20250130
  5. HALDOL [Suspect]
     Active Substance: HALOPERIDOL
     Indication: Medication error
     Dates: start: 20250130, end: 20250130
  6. RISPERDAL [Suspect]
     Active Substance: RISPERIDONE
     Indication: Medication error
     Dates: start: 20250130, end: 20250130

REACTIONS (4)
  - Coma [Recovered/Resolved]
  - Hyperthermia [Recovered/Resolved]
  - Pneumonia aspiration [Recovered/Resolved]
  - Wrong patient received product [Recovered/Resolved]

NARRATIVE: CASE EVENT DATE: 20250130
